FAERS Safety Report 4655253-1 (Version None)
Quarter: 2005Q2

REPORT INFORMATION
  Report Type: 
  Country: None (occurrence: None)
  Receive Date: 20050506
  Receipt Date: 20050426
  Transmission Date: 20051028
  Serious: Yes (Life-Threatening, Other)
  Sender: FDA-Public Use
  Company Number: US-JNJFOC-20050403015

PATIENT
  Age: 58 Year
  Sex: Female
  Weight: 79 kg

DRUGS (6)
  1. DOXIL [Suspect]
     Route: 042
  2. TAXOTERE [Suspect]
     Route: 042
  3. HERCEPTIN [Suspect]
     Dosage: 165 MG (DAY 1) WEEKLY
     Route: 042
  4. HERCEPTIN [Suspect]
     Dosage: 2 MG/KG (DAY 1) WEEKLY
     Route: 042
  5. HERCEPTIN [Suspect]
     Dosage: 4 MG/KG X 1 CYCLE
     Route: 042
  6. PYRIDOXINE HCL [Suspect]
     Route: 049

REACTIONS (4)
  - ACUTE RESPIRATORY DISTRESS SYNDROME [None]
  - PALMAR-PLANTAR ERYTHRODYSAESTHESIA SYNDROME [None]
  - PNEUMONITIS [None]
  - STOMATITIS [None]
